FAERS Safety Report 15108513 (Version 1)
Quarter: 2018Q3

REPORT INFORMATION
  Report Type: Spontaneous
  Country: US (occurrence: US)
  Receive Date: 20180705
  Receipt Date: 20180705
  Transmission Date: 20181010
  Serious: No
  Sender: FDA-Public Use
  Company Number: US-TEVA-2018-US-921673

PATIENT
  Age: 3 Year
  Sex: Male

DRUGS (1)
  1. AUSTEDO [Suspect]
     Active Substance: DEUTETRABENAZINE
     Indication: CHOREA
     Dosage: 24 MILLIGRAM DAILY;
     Route: 065

REACTIONS (1)
  - Drug administered to patient of inappropriate age [Unknown]
